FAERS Safety Report 15336141 (Version 1)
Quarter: 2018Q3

REPORT INFORMATION
  Report Type: Spontaneous
  Country: GB (occurrence: GB)
  Receive Date: 20180830
  Receipt Date: 20180830
  Transmission Date: 20181010
  Serious: Yes (Other)
  Sender: FDA-Public Use
  Company Number: GB-009507513-1808GBR011723

PATIENT
  Age: 8 Year
  Sex: Male

DRUGS (1)
  1. MONTELUKAST SODIUM. [Suspect]
     Active Substance: MONTELUKAST SODIUM
     Indication: ASTHMA
     Dosage: 5 MG, UNK
     Dates: end: 20180724

REACTIONS (3)
  - Depressed mood [Recovering/Resolving]
  - Suicidal ideation [Unknown]
  - Anger [Unknown]
